FAERS Safety Report 5866143-0 (Version None)
Quarter: 2008Q3

REPORT INFORMATION
  Report Type: 
  Country: None (occurrence: None)
  Receive Date: 20080829
  Receipt Date: 20080819
  Transmission Date: 20090109
  Serious: Yes (Hospitalization)
  Sender: FDA-Public Use
  Company Number: US-MERCK-0808USA04127

PATIENT
  Age: 49 Year
  Sex: Female

DRUGS (11)
  1. SINGULAIR [Suspect]
     Indication: ASTHMA
     Route: 048
  2. FLUTICASONE PROPIONATE AND SALMETEROL XINAFOATE [Concomitant]
     Route: 065
  3. LEVALBUTEROL SULFATE [Concomitant]
     Route: 065
  4. FEXOFENADINE HYDROCHLORIDE [Concomitant]
     Route: 065
  5. FLUTICASONE FUROATE [Concomitant]
     Route: 065
  6. AZELASTINE HYDROCHLORIDE [Concomitant]
     Route: 065
  7. ALBUTEROL [Concomitant]
     Route: 065
  8. IPRATROPIUM BROMIDE [Concomitant]
     Route: 065
  9. PANTOPRAZOLE [Concomitant]
     Route: 065
  10. HYDROCHLOROTHIAZIDE [Concomitant]
     Route: 065
  11. WARFARIN [Concomitant]
     Route: 065

REACTIONS (4)
  - ASTHMA [None]
  - CYSTITIS [None]
  - DRUG INEFFECTIVE [None]
  - PNEUMONIA [None]
